FAERS Safety Report 4619562-4 (Version None)
Quarter: 2005Q1

REPORT INFORMATION
  Report Type: 
  Country: None (occurrence: None)
  Receive Date: 20050324
  Receipt Date: 20050311
  Transmission Date: 20050727
  Serious: Yes (Other)
  Sender: FDA-Public Use
  Company Number: HQWYE202416JUL04

PATIENT
  Sex: Female
  Weight: 118.04 kg

DRUGS (1)
  1. PREMPRO [Suspect]
     Dosage: ORAL
     Route: 048

REACTIONS (6)
  - BLOOD URINE PRESENT [None]
  - DEEP VEIN THROMBOSIS [None]
  - INFECTION [None]
  - NEOPLASM MALIGNANT [None]
  - PULMONARY EMBOLISM [None]
  - THROMBOSIS [None]
